FAERS Safety Report 14642392 (Version 2)
Quarter: 2019Q4

REPORT INFORMATION
  Report Type: Spontaneous
  Country: GB (occurrence: GB)
  Receive Date: 20180315
  Receipt Date: 20191120
  Transmission Date: 20200122
  Serious: Yes (Other)
  Sender: FDA-Public Use
  Company Number: GB-TEVA-2018-GB-867748

PATIENT
  Age: 78 Year
  Sex: Female

DRUGS (1)
  1. CO-CARELDOPA [Suspect]
     Active Substance: CARBIDOPA\LEVODOPA
     Indication: PARKINSON^S DISEASE
     Dosage: 5 DOSAGE FORMS DAILY; 25 / 100MG  - 8AM, 11:30AM, 16:00, 20:00 AND 22:00
     Route: 065

REACTIONS (3)
  - Inappropriate schedule of product administration [Unknown]
  - Mobility decreased [Unknown]
  - Dyskinesia [Unknown]

NARRATIVE: CASE EVENT DATE: 20171102
